FAERS Safety Report 8816326 (Version 1)
Quarter: 2012Q4

REPORT INFORMATION
  Report Type: 
  Country: US (occurrence: None)
  Receive Date: 20120928
  Receipt Date: 20120928
  Transmission Date: 20130627
  Serious: Yes (Hospitalization)
  Sender: FDA-Public Use
  Company Number: None

PATIENT
  Sex: Male

DRUGS (1)
  1. CISPLATIN [Suspect]
     Dosage: 414 mg

REACTIONS (2)
  - Pharyngitis [None]
  - Oropharyngeal pain [None]
